FAERS Safety Report 21113330 (Version 1)
Quarter: 2022Q3

REPORT INFORMATION
  Report Type: Spontaneous
  Country: US (occurrence: None)
  Receive Date: 20220721
  Receipt Date: 20220721
  Transmission Date: 20221027
  Serious: Yes (Hospitalization)
  Sender: FDA-Public Use
  Company Number: None

PATIENT
  Sex: Female

DRUGS (13)
  1. EPOGEN [Suspect]
     Active Substance: ERYTHROPOIETIN
     Indication: Cardiac failure
     Route: 058
  2. AMLODIPINE [Concomitant]
  3. CALCITRIOL [Concomitant]
  4. CLONIDINE [Concomitant]
     Active Substance: CLONIDINE
  5. CLOPIDOGREL [Concomitant]
  6. FLUCONAZOLE [Concomitant]
  7. FUROSEMIDE [Concomitant]
  8. LABETALOL [Concomitant]
  9. LEVOTHYROXIN [Concomitant]
  10. OZEMPIC [Concomitant]
  11. PROCRIT [Concomitant]
  12. PROCRIT [Concomitant]
  13. SIMVASTATIN [Concomitant]

REACTIONS (1)
  - Knee operation [None]
